FAERS Safety Report 4594079-4 (Version None)
Quarter: 2005Q1

REPORT INFORMATION
  Report Type: 
  Country: None (occurrence: None)
  Receive Date: 20050223
  Receipt Date: 20050209
  Transmission Date: 20050727
  Serious: Yes (Hospitalization)
  Sender: FDA-Public Use
  Company Number: MEDI-0002815

PATIENT
  Age: 62 Year
  Sex: Female
  Weight: 71.6683 kg

DRUGS (14)
  1. ETHYOL [Suspect]
     Indication: LUNG NEOPLASM MALIGNANT
     Dosage: 500 MG, 5 IN 1 WK, SUBCUTANEOUS
     Route: 058
     Dates: start: 20050118, end: 20050129
  2. RADIATION THERAPY [Concomitant]
  3. CISPLATIN [Concomitant]
  4. ETOPOSIDE [Concomitant]
  5. FILGRASTIM (FILGRASTIM) [Concomitant]
  6. MAGNESIUM OXIDE (MAGNESIUM OXIDE) [Concomitant]
  7. BEMYLID [Concomitant]
  8. MS CONTIN [Concomitant]
  9. OXYCODONE HCL [Concomitant]
  10. ARNESP [Concomitant]
  11. ZOFRAN [Concomitant]
  12. ACYCLOVIR [Concomitant]
  13. AMBIEN [Concomitant]
  14. CEFIXIME [Concomitant]

REACTIONS (12)
  - ACANTHOLYSIS [None]
  - INJECTION SITE DISCOMFORT [None]
  - INJECTION SITE ERYTHEMA [None]
  - INJECTION SITE REACTION [None]
  - POST PROCEDURAL COMPLICATION [None]
  - RADIATION INJURY [None]
  - RASH GENERALISED [None]
  - RASH MACULO-PAPULAR [None]
  - RASH VESICULAR [None]
  - SKIN DISCOLOURATION [None]
  - SKIN HYPERTROPHY [None]
  - VARICELLA [None]
